FAERS Safety Report 9899366 (Version 2)
Quarter: 2014Q1

REPORT INFORMATION
  Report Type: Report from Study
  Country: US (occurrence: US)
  Receive Date: 20140214
  Receipt Date: 20140226
  Transmission Date: 20141002
  Serious: Yes (Hospitalization)
  Sender: FDA-Public Use
  Company Number: US-ACTELION-A-US2014-94648

PATIENT
  Age: 54 Year
  Sex: Female

DRUGS (2)
  1. TRACLEER [Suspect]
     Indication: PULMONARY ARTERIAL HYPERTENSION
     Dosage: UNK
     Route: 048
  2. VELETRI [Suspect]
     Indication: COR PULMONALE CHRONIC
     Dosage: 16.7 NG/KG, PER MIN
     Route: 041
     Dates: start: 20110321

REACTIONS (3)
  - Gallbladder disorder [Not Recovered/Not Resolved]
  - Abdominal pain [Unknown]
  - Dyspnoea [Unknown]
